FAERS Safety Report 18458751 (Version 2)
Quarter: 2021Q1

REPORT INFORMATION
  Report Type: Report from Study
  Country: US (occurrence: US)
  Receive Date: 20201103
  Receipt Date: 20210129
  Transmission Date: 20210419
  Serious: Yes (Other)
  Sender: FDA-Public Use
  Company Number: US-JNJFOC-20201035224

PATIENT
  Age: 49 Year
  Sex: Female
  Weight: 47.22 kg

DRUGS (1)
  1. MACITENTAN [Suspect]
     Active Substance: MACITENTAN
     Indication: PRODUCT USED FOR UNKNOWN INDICATION
     Route: 048

REACTIONS (1)
  - Paralysis [Recovered/Resolved]
